FAERS Safety Report 4359203-7 (Version None)
Quarter: 2004Q2

REPORT INFORMATION
  Report Type: 
  Country: None (occurrence: None)
  Receive Date: 20040517
  Receipt Date: 20040517
  Transmission Date: 20050107
  Serious: Yes (Hospitalization)
  Sender: FDA-Public Use
  Company Number: None

PATIENT
  Age: 81 Year
  Sex: Male
  Weight: 32.2054 kg

DRUGS (8)
  1. DIGOXIN [Suspect]
     Indication: ATRIAL FIBRILLATION
     Dosage: 0.25 MG DAILY ORAL
     Route: 048
     Dates: start: 20031223, end: 20040109
  2. ALPRAZOLAM [Concomitant]
  3. ASPIRIN [Concomitant]
  4. IRBESARIAN [Concomitant]
  5. METOPROLOL [Concomitant]
  6. RANITIDINE [Concomitant]
  7. SOMA [Concomitant]
  8. SIMVASTATIN [Concomitant]

REACTIONS (8)
  - BLOOD PRESSURE INCREASED [None]
  - BRADYCARDIA [None]
  - CARDIAC ARREST [None]
  - DRUG LEVEL INCREASED [None]
  - DYSARTHRIA [None]
  - FALL [None]
  - HEADACHE [None]
  - VOMITING [None]
